FAERS Safety Report 24127301 (Version 3)
Quarter: 2024Q4

REPORT INFORMATION
  Report Type: Report from Study
  Country: US (occurrence: US)
  Receive Date: 20240723
  Receipt Date: 20241113
  Transmission Date: 20250114
  Serious: Yes (Hospitalization, Other)
  Sender: IOVANCE BIOTHERAPEUTICS MANUFACTURING LLC
  Company Number: US-CLINIGEN-US-CLI-2023-000453

PATIENT
  Age: 61 Year
  Sex: Male

DRUGS (9)
  1. ALDESLEUKIN [Suspect]
     Active Substance: ALDESLEUKIN
     Indication: Non-small cell lung cancer metastatic
     Dosage: 6 DOSES IN TOTAL, Q12H
     Route: 065
     Dates: start: 20230503, end: 20230505
  2. LIFILEUCEL [Suspect]
     Active Substance: LIFILEUCEL
     Indication: Lung adenocarcinoma stage IV
     Dosage: UNK
     Route: 065
     Dates: start: 20230502, end: 20230502
  3. FLUDARABINE [Suspect]
     Active Substance: FLUDARABINE PHOSPHATE
     Indication: Lung adenocarcinoma stage IV
     Dosage: UNK
     Route: 065
     Dates: start: 20230427, end: 20230501
  4. CYCLOPHOSPHAMIDE [Suspect]
     Active Substance: CYCLOPHOSPHAMIDE
     Indication: Lung adenocarcinoma stage IV
     Dosage: UNK
     Route: 065
     Dates: start: 20230427, end: 20230428
  5. FILGRASTIM [Concomitant]
     Active Substance: FILGRASTIM
     Indication: Product used for unknown indication
     Dosage: 300 MICROGRAM, QD
     Route: 058
     Dates: start: 20230503, end: 20230510
  6. FILGRASTIM [Concomitant]
     Active Substance: FILGRASTIM
     Dosage: 480 MICROGRAM, QD
     Route: 058
     Dates: start: 20230511, end: 20230514
  7. FILGRASTIM [Concomitant]
     Active Substance: FILGRASTIM
     Dosage: 600 MICROGRAM, QD
     Route: 058
     Dates: start: 20230515
  8. FILGRASTIM [Concomitant]
     Active Substance: FILGRASTIM
     Dosage: TOTAL 1500 UG
  9. ELIQUIS [Concomitant]
     Active Substance: APIXABAN
     Indication: Thrombosis
     Dosage: 5 MILLIGRAM, BID
     Route: 048
     Dates: end: 20230502

REACTIONS (12)
  - Tooth infection [Recovered/Resolved]
  - Hypoxia [Unknown]
  - Acute kidney injury [Unknown]
  - Platelet count decreased [Recovered/Resolved]
  - Neutrophil count decreased [Recovered/Resolved]
  - Anaemia [Not Recovered/Not Resolved]
  - Haemorrhage intracranial [Not Recovered/Not Resolved]
  - Pyrexia [Unknown]
  - Chills [Unknown]
  - Hypotension [Unknown]
  - Generalised oedema [Unknown]
  - Ventricular extrasystoles [Unknown]

NARRATIVE: CASE EVENT DATE: 20230516
